FAERS Safety Report 8975478 (Version 2)
Quarter: 2013Q1

REPORT INFORMATION
  Report Type: Spontaneous
  Country: US (occurrence: US)
  Receive Date: 20121219
  Receipt Date: 20130108
  Transmission Date: 20140127
  Serious: No
  Sender: FDA-Public Use
  Company Number: US-VERTEX PHARMACEUTICALS INC.-2012-026316

PATIENT
  Age: 54 Year
  Sex: Female
  Weight: 63 kg

DRUGS (3)
  1. INCIVEK [Suspect]
     Indication: HEPATITIS C
     Dosage: UNK, TID
     Route: 048
     Dates: start: 20121112, end: 20121216
  2. PEGASYS [Suspect]
     Indication: HEPATITIS C
     Dosage: UNK
     Dates: start: 20121112
  3. RIBAVIRIN [Suspect]
     Indication: HEPATITIS C
     Dosage: UNK
     Dates: start: 20121112

REACTIONS (1)
  - Drug ineffective [Not Recovered/Not Resolved]
